FAERS Safety Report 10294671 (Version 5)
Quarter: 2014Q4

REPORT INFORMATION
  Report Type: Report from Study
  Country: US (occurrence: US)
  Receive Date: 20140711
  Receipt Date: 20141013
  Transmission Date: 20150528
  Serious: Yes (Hospitalization)
  Sender: FDA-Public Use
  Company Number: US-009507513-1407USA003958

PATIENT
  Age: 3 Year
  Sex: Female
  Weight: 21.6 kg

DRUGS (32)
  1. FILGRASTIM [Suspect]
     Active Substance: FILGRASTIM
     Dosage: 200 MICROGRAM
     Dates: start: 20140705, end: 20140706
  2. ONDANSETRON HYDROCHLORIDE. [Concomitant]
     Active Substance: ONDANSETRON HYDROCHLORIDE
  3. PYRIDOXINE [Concomitant]
     Active Substance: PYRIDOXINE
  4. VINCRISTINE SULFATE. [Suspect]
     Active Substance: VINCRISTINE SULFATE
     Dosage: 0.05 MG/KG/DAY IVP ON DAYS 4, 11 AND 18, TOTAL DOSE ADMINISTERED THIS COURSE: 2.2 MG
     Route: 042
     Dates: start: 20140702, end: 20140702
  5. FILGRASTIM [Suspect]
     Active Substance: FILGRASTIM
     Dosage: 110 MICROGRAM
     Dates: start: 20140627, end: 20140630
  6. ALTEPLASE [Concomitant]
     Active Substance: ALTEPLASE
  7. FUROSEMIDE. [Concomitant]
     Active Substance: FUROSEMIDE
  8. MICAFUNGIN SODIUM [Concomitant]
     Active Substance: MICAFUNGIN SODIUM
  9. SODIUM CHLORIDE. [Concomitant]
     Active Substance: SODIUM CHLORIDE
  10. CEFAZOLIN [Concomitant]
     Active Substance: CEFAZOLIN
  11. MORPHINE SULFATE. [Concomitant]
     Active Substance: MORPHINE SULFATE
  12. VANCOMYCIN [Concomitant]
     Active Substance: VANCOMYCIN
  13. CYCLOPHOSPHAMIDE. [Suspect]
     Active Substance: CYCLOPHOSPHAMIDE
     Indication: MEDULLOBLASTOMA
     Dosage: 60 MG/KG, OVER 1 HOUR ON DAYS 5 AND 6
     Route: 042
     Dates: start: 20140625, end: 20140626
  14. FLUCONAZOLE. [Concomitant]
     Active Substance: FLUCONAZOLE
  15. LACTULOSE. [Concomitant]
     Active Substance: LACTULOSE
  16. VINCRISTINE SULFATE. [Suspect]
     Active Substance: VINCRISTINE SULFATE
     Indication: MEDULLOBLASTOMA
     Dosage: 0.05 MG/KG/DAY IVP ON DAYS 4, 11 AND 18, TOTAL DOSE ADMINISTERED THIS COURSE: 2.2 MG
     Route: 042
     Dates: start: 20140624, end: 20140624
  17. MESNA. [Suspect]
     Active Substance: MESNA
     Dosage: TOTAL DOSE ADMINISTERED THIS COURSE: 2600 MG
     Dates: end: 20140626
  18. LEVETIRACETAM. [Concomitant]
     Active Substance: LEVETIRACETAM
  19. FILGRASTIM [Suspect]
     Active Substance: FILGRASTIM
     Dosage: 220 MICROGRAM
     Dates: start: 20140702
  20. ACETAMINOPHEN. [Concomitant]
     Active Substance: ACETAMINOPHEN
  21. POTASSIUM CHLORIDE. [Concomitant]
     Active Substance: POTASSIUM CHLORIDE
  22. ISOTRETINOIN [Suspect]
     Active Substance: ISOTRETINOIN
     Indication: MEDULLOBLASTOMA
     Dosage: 80 MG/M2/DOSE, BID ON DAYS 1-4, TOTAL DOSE ADMINISTERED THIS COURSE: 480 MG
     Route: 048
     Dates: start: 20140621, end: 20140624
  23. CEFEPIME [Concomitant]
     Active Substance: CEFEPIME\CEFEPIME HYDROCHLORIDE
  24. LORAZEPAM. [Concomitant]
     Active Substance: LORAZEPAM
  25. MANNITOL. [Concomitant]
     Active Substance: MANNITOL
  26. POLYETHYLENE GLYCOL [Concomitant]
     Active Substance: POLYETHYLENE GLYCOLS
  27. VORINOSTAT [Suspect]
     Active Substance: VORINOSTAT
     Indication: MEDULLOBLASTOMA
     Dosage: 180 MG/M2/DOSE ON DAYS 1-4, TOTAL DOSE ADMINISTERED THIS COURSE: 14.4 ML
     Route: 048
     Dates: start: 20140621, end: 20140624
  28. CISPLATIN. [Suspect]
     Active Substance: CISPLATIN
     Indication: MEDULLOBLASTOMA
     Dosage: 3.5 MG/KG/DAY OVER 6 HOURS ON DAY 4
     Route: 042
     Dates: start: 20140624, end: 20140624
  29. ETOPOSIDE. [Suspect]
     Active Substance: ETOPOSIDE
     Indication: MEDULLOBLASTOMA
     Dosage: 2.5 MG/KG/DAY OVER 1 HR ON DAYS 4, 5 AND 6, TOTAL DOSE ADMINISTERED THIS COURSE: 165 MG
     Route: 042
     Dates: start: 20140624, end: 20140626
  30. FILGRASTIM [Suspect]
     Active Substance: FILGRASTIM
     Dosage: UNK
     Dates: start: 201407, end: 20140709
  31. METOCLOPRAMIDE. [Concomitant]
     Active Substance: METOCLOPRAMIDE
  32. SULFAMETHOXAZOLE (+) TRIMETHOPRIM [Concomitant]
     Active Substance: SULFAMETHOXAZOLE\TRIMETHOPRIM

REACTIONS (2)
  - Febrile neutropenia [Recovered/Resolved]
  - Device related infection [Recovered/Resolved]

NARRATIVE: CASE EVENT DATE: 20140705
